FAERS Safety Report 9209505 (Version 1)
Quarter: 2013Q1

REPORT INFORMATION
  Report Type: Spontaneous
  Country: US (occurrence: None)
  Receive Date: 20120820
  Receipt Date: 20120820
  Transmission Date: 20140127
  Serious: No
  Sender: FDA-Public Use
  Company Number: 1000030566

PATIENT
  Age: 27 Year
  Sex: Male

DRUGS (1)
  1. VIIBRYD (VILAZODONE) (10 MILLIGRAM, TABLETS) [Suspect]
     Route: 048
     Dates: start: 20120205, end: 20120209

REACTIONS (1)
  - Abdominal pain [None]
